FAERS Safety Report 11121089 (Version 1)
Quarter: 2015Q2

REPORT INFORMATION
  Report Type: Spontaneous
  Country: US (occurrence: US)
  Receive Date: 20150519
  Receipt Date: 20150519
  Transmission Date: 20150821
  Serious: No
  Sender: FDA-Public Use
  Company Number: US-009507513-1505USA003239

PATIENT
  Age: 26 Year
  Sex: Female
  Weight: 78.91 kg

DRUGS (1)
  1. IMPLANON [Suspect]
     Active Substance: ETONOGESTREL
     Indication: CONTRACEPTION
     Dosage: 1  ROD
     Route: 059
     Dates: start: 20120418

REACTIONS (5)
  - Breast tenderness [Not Recovered/Not Resolved]
  - Menstruation delayed [Not Recovered/Not Resolved]
  - Headache [Not Recovered/Not Resolved]
  - Incorrect drug administration duration [Unknown]
  - Breast pain [Not Recovered/Not Resolved]

NARRATIVE: CASE EVENT DATE: 20150418
